FAERS Safety Report 5514961-0 (Version None)
Quarter: 2007Q4

REPORT INFORMATION
  Report Type: 
  Country: None (occurrence: None)
  Receive Date: 20071113
  Receipt Date: 20061020
  Transmission Date: 20080405
  Serious: No
  Sender: FDA-Public Use
  Company Number: A0624388A

PATIENT
  Age: 33 Year
  Sex: Male

DRUGS (8)
  1. COREG [Suspect]
     Dosage: 12.5MG TWICE PER DAY
     Route: 048
  2. MUCINEX [Concomitant]
  3. TUSSIN [Concomitant]
  4. LIPITOR [Concomitant]
  5. ASPIRIN [Concomitant]
  6. DUONEB [Concomitant]
  7. ASMANEX TWISTHALER [Concomitant]
  8. LISINOPRIL [Concomitant]

REACTIONS (3)
  - DIZZINESS [None]
  - DYSPNOEA [None]
  - RESPIRATORY TRACT CONGESTION [None]
